FAERS Safety Report 17831129 (Version 1)
Quarter: 2020Q2

REPORT INFORMATION
  Report Type: Spontaneous
  Country: HR (occurrence: HR)
  Receive Date: 20200527
  Receipt Date: 20200527
  Transmission Date: 20200714
  Serious: Yes (Other)
  Sender: FDA-Public Use
  Company Number: HR-TEVA-2020-HR-1239724

PATIENT
  Sex: Male

DRUGS (4)
  1. QUETIAPINE. [Suspect]
     Active Substance: QUETIAPINE
     Dosage: 1 DOSAGE FORMS
     Route: 048
     Dates: start: 20200127, end: 20200127
  2. RIVOTRIL [Suspect]
     Active Substance: CLONAZEPAM
     Dosage: 20 DOSAGE FORMS
     Route: 048
     Dates: start: 20200127, end: 20200127
  3. OKSAZEPAM [Suspect]
     Active Substance: OXAZEPAM
     Dosage: 1 DOSAGE FORMS
     Route: 048
     Dates: start: 20200127, end: 20200127
  4. ALCOHOL. [Suspect]
     Active Substance: ALCOHOL
     Route: 048
     Dates: start: 20200127, end: 20200127

REACTIONS (3)
  - Suicide attempt [Unknown]
  - No adverse event [Unknown]
  - Intentional overdose [Unknown]

NARRATIVE: CASE EVENT DATE: 20200127
